FAERS Safety Report 10056178 (Version 1)
Quarter: 2014Q2

REPORT INFORMATION
  Report Type: Spontaneous
  Country: JP (occurrence: None)
  Receive Date: 20140401
  Receipt Date: 20140401
  Transmission Date: 20141212
  Serious: Yes (Other)
  Sender: FDA-Public Use
  Company Number: 2014P1002395

PATIENT
  Age: 20 Year
  Sex: Male

DRUGS (6)
  1. HYDROCORTISONE [Suspect]
     Indication: CHEMOTHERAPY
  2. METHOTREXATE [Suspect]
     Indication: CHEMOTHERAPY
     Route: 037
  3. CYTARABINE [Concomitant]
  4. CYCLOPHOSPHAMIDE [Concomitant]
  5. PIRARUBICIN HYDROCHLORIDE [Concomitant]
  6. MERCAPTOPURINE [Concomitant]

REACTIONS (1)
  - Leukoencephalopathy [None]
